FAERS Safety Report 6349448-9 (Version None)
Quarter: 2009Q3

REPORT INFORMATION
  Report Type: 
  Country: None (occurrence: None)
  Receive Date: 20090911
  Receipt Date: 20090909
  Transmission Date: 20100115
  Serious: Yes (Death, Other)
  Sender: FDA-Public Use
  Company Number: US-CELGENEUS-163-20785-09082256

PATIENT
  Sex: Female

DRUGS (1)
  1. THALOMID [Suspect]
     Indication: BEHCET'S SYNDROME
     Route: 048
     Dates: start: 20060501

REACTIONS (3)
  - FALL [None]
  - HIP FRACTURE [None]
  - PULMONARY EMBOLISM [None]
